FAERS Safety Report 8763225 (Version 1)
Quarter: 2012Q4

REPORT INFORMATION
  Report Type: 
  Country: US (occurrence: US)
  Receive Date: 20120831
  Receipt Date: 20120831
  Transmission Date: 20130627
  Serious: No
  Sender: FDA-Public Use
  Company Number: US-MYLANLABS-2012S1010509

PATIENT
  Age: 35 Year
  Sex: Female
  Weight: 82.56 kg

DRUGS (4)
  1. CLINDAMYCIN/BENZOYL PEROXIDE GEL [Suspect]
     Indication: FUNGAL INFECTION
     Route: 061
     Dates: start: 20120516, end: 20120517
  2. MULTIVITAMIN [Concomitant]
  3. CALCIUM [Concomitant]
  4. PRILOSEC [Concomitant]
     Indication: GASTROOESOPHAGEAL REFLUX DISEASE

REACTIONS (5)
  - Hypersensitivity [Not Recovered/Not Resolved]
  - Application site rash [Recovering/Resolving]
  - Application site pruritus [Recovering/Resolving]
  - Application site irritation [Not Recovered/Not Resolved]
  - Application site erythema [Not Recovered/Not Resolved]
